FAERS Safety Report 11544870 (Version 3)
Quarter: 2015Q4

REPORT INFORMATION
  Report Type: Spontaneous
  Country: DE (occurrence: DE)
  Receive Date: 20150924
  Receipt Date: 20151015
  Transmission Date: 20160304
  Serious: Yes (Hospitalization)
  Sender: FDA-Public Use
  Company Number: DE-SA-2015SA141781

PATIENT
  Sex: Male

DRUGS (4)
  1. METOHEXAL [Concomitant]
     Active Substance: METOPROLOL SUCCINATE
  2. MULTAQ [Suspect]
     Active Substance: DRONEDARONE
     Indication: ATRIAL FIBRILLATION
     Route: 048
     Dates: end: 201503
  3. PRADAXA [Suspect]
     Active Substance: DABIGATRAN ETEXILATE MESYLATE
     Indication: ATRIAL FIBRILLATION
     Route: 065
  4. METOPROLOL [Concomitant]
     Active Substance: METOPROLOL

REACTIONS (3)
  - Myalgia [Recovering/Resolving]
  - Polyneuropathy [Recovering/Resolving]
  - Pain in extremity [Not Recovered/Not Resolved]

NARRATIVE: CASE EVENT DATE: 2015
